FAERS Safety Report 11327964 (Version 1)
Quarter: 2015Q3

REPORT INFORMATION
  Report Type: Spontaneous
  Country: US (occurrence: US)
  Receive Date: 20150731
  Receipt Date: 20150731
  Transmission Date: 20151125
  Serious: No
  Sender: FDA-Public Use
  Company Number: US-TARO-2014TAR00313

PATIENT
  Sex: Male

DRUGS (2)
  1. FLUOCINONIDE CREAM USP 0.05% [Suspect]
     Active Substance: FLUOCINONIDE
     Indication: RASH
     Route: 061
  2. FLUOCINONIDE CREAM USP 0.05% [Suspect]
     Active Substance: FLUOCINONIDE
     Indication: ECZEMA

REACTIONS (1)
  - Drug ineffective [Recovering/Resolving]
